FAERS Safety Report 13028201 (Version 2)
Quarter: 2017Q3

REPORT INFORMATION
  Report Type: Spontaneous
  Country: JP (occurrence: JP)
  Receive Date: 20161214
  Receipt Date: 20170929
  Transmission Date: 20171127
  Serious: Yes (Hospitalization)
  Sender: FDA-Public Use
  Company Number: PHJP2016JP035928

PATIENT
  Age: 91 Year
  Sex: Female

DRUGS (1)
  1. RASILEZ [Suspect]
     Active Substance: ALISKIREN
     Indication: HYPERTENSION
     Dosage: 0.5 DF, UNK
     Route: 048

REACTIONS (2)
  - Pneumonia [Recovered/Resolved]
  - Incorrect dose administered [Unknown]
